FAERS Safety Report 22041419 (Version 2)
Quarter: 2023Q1

REPORT INFORMATION
  Report Type: Spontaneous
  Country: US (occurrence: US)
  Receive Date: 20230227
  Receipt Date: 20230329
  Transmission Date: 20230417
  Serious: Yes (Other)
  Sender: FDA-Public Use
  Company Number: US-BRISTOL-MYERS SQUIBB COMPANY-2023-026229

PATIENT
  Age: 75 Year
  Sex: Female
  Weight: 117 kg

DRUGS (15)
  1. POMALYST [Suspect]
     Active Substance: POMALIDOMIDE
     Indication: Plasma cell myeloma
     Dosage: 3 CAPSULES
     Route: 048
     Dates: start: 20230130, end: 20230216
  2. POMALYST [Suspect]
     Active Substance: POMALIDOMIDE
     Dosage: REFILL -  NO CHANGE
     Route: 048
     Dates: start: 20230216, end: 20230321
  3. POMALYST [Suspect]
     Active Substance: POMALIDOMIDE
     Dosage: REFILL -  NO CHANGE
     Route: 048
     Dates: start: 20230321
  4. AMLODIPINE BESYLATE [Concomitant]
     Active Substance: AMLODIPINE BESYLATE
     Indication: Product used for unknown indication
     Route: 048
     Dates: start: 20210301
  5. ALLOPURINOL [Concomitant]
     Active Substance: ALLOPURINOL
     Indication: Product used for unknown indication
     Route: 048
     Dates: start: 20210301
  6. COLCHICINE [Concomitant]
     Active Substance: COLCHICINE
     Indication: Gout
     Route: 048
     Dates: start: 20210301
  7. ACETAMINOPHEN [Concomitant]
     Active Substance: ACETAMINOPHEN
     Indication: Product used for unknown indication
     Route: 048
     Dates: start: 20210301
  8. FUROSEMIDE [Concomitant]
     Active Substance: FUROSEMIDE
     Indication: Product used for unknown indication
     Dosage: PRN
     Route: 048
     Dates: start: 20210608
  9. FLONASE ALLERGY RELIEF [Concomitant]
     Active Substance: FLUTICASONE PROPIONATE
     Indication: Product used for unknown indication
     Dosage: NASAL SUSPENSION, PRN
     Route: 045
     Dates: start: 20230201
  10. RETIN-A [Concomitant]
     Active Substance: TRETINOIN
     Indication: Product used for unknown indication
     Dosage: EXTERNAL CREAM, ROUTE: EXTERNAL, PRN
     Dates: start: 20230201
  11. NYSTATIN [Concomitant]
     Active Substance: NYSTATIN
     Indication: Product used for unknown indication
     Dosage: 100000 UNITS MOUTH/THROAT SUSPENSION 10
     Dates: start: 20230201
  12. PROCHLORPERAZINE MALEATE [Concomitant]
     Active Substance: PROCHLORPERAZINE MALEATE
     Indication: Product used for unknown indication
     Dosage: PRN
     Route: 048
     Dates: start: 20230201
  13. TRAMADOL HCL [Concomitant]
     Active Substance: TRAMADOL HYDROCHLORIDE
     Indication: Product used for unknown indication
     Dosage: PRN
     Route: 048
     Dates: start: 20230201
  14. GABAPENTIN [Concomitant]
     Active Substance: GABAPENTIN
     Indication: Product used for unknown indication
     Route: 048
     Dates: start: 20230201
  15. GABAPENTIN [Concomitant]
     Active Substance: GABAPENTIN
     Dosage: PRN?CAN TAKE AT BEDTIME OF NEEDED
     Route: 048
     Dates: start: 20230201

REACTIONS (3)
  - Thrombocytopenia [Recovering/Resolving]
  - Contusion [Recovering/Resolving]
  - White blood cell count decreased [Recovering/Resolving]

NARRATIVE: CASE EVENT DATE: 20230201
